FAERS Safety Report 4364870-8 (Version None)
Quarter: 2004Q2

REPORT INFORMATION
  Report Type: 
  Country: None (occurrence: None)
  Receive Date: 20040514
  Receipt Date: 20030604
  Transmission Date: 20050107
  Serious: Yes (Other)
  Sender: FDA-Public Use
  Company Number: WAES 0306USA00484

PATIENT
  Sex: Male

DRUGS (4)
  1. CRIXIVAN [Suspect]
     Dosage: 800 MG/BID/PO
     Route: 048
     Dates: start: 20011001, end: 20030401
  2. NORVIR [Concomitant]
  3. ZERIT [Concomitant]
  4. ZIAGEN [Concomitant]

REACTIONS (2)
  - NEPHROLITHIASIS [None]
  - RENAL FAILURE [None]
